FAERS Safety Report 10658005 (Version 2)
Quarter: 2015Q1

REPORT INFORMATION
  Report Type: Spontaneous
  Country: US (occurrence: US)
  Receive Date: 20141217
  Receipt Date: 20150109
  Transmission Date: 20150720
  Serious: No
  Sender: FDA-Public Use
  Company Number: US-GLAXOSMITHKLINE-A1059663A

PATIENT
  Sex: Male
  Weight: 83.9 kg

DRUGS (12)
  1. SIMVASTATIN. [Concomitant]
     Active Substance: SIMVASTATIN
  2. ASPIRIN. [Concomitant]
     Active Substance: ASPIRIN
  3. LOSARTAN [Concomitant]
     Active Substance: LOSARTAN
  4. ONDANSETRON [Concomitant]
     Active Substance: ONDANSETRON
  5. OXYBUTYNIN [Concomitant]
     Active Substance: OXYBUTYNIN
  6. CALCIUM [Concomitant]
     Active Substance: CALCIUM
  7. VITAMIN D [Concomitant]
     Active Substance: CHOLECALCIFEROL
  8. VOTRIENT [Suspect]
     Active Substance: PAZOPANIB HYDROCHLORIDE
     Indication: RENAL CANCER
     Dosage: 200 MG AT 4 TABLETS (800 MG) DAILY
  9. VOTRIENT [Suspect]
     Active Substance: PAZOPANIB HYDROCHLORIDE
     Dosage: 400 MG, QD
     Route: 048
     Dates: end: 201410
  10. HUMALOG [Concomitant]
     Active Substance: INSULIN LISPRO
  11. FENOFIBRATE. [Concomitant]
     Active Substance: FENOFIBRATE
  12. LANTUS [Concomitant]
     Active Substance: INSULIN GLARGINE

REACTIONS (7)
  - Vomiting [Unknown]
  - Decreased appetite [Unknown]
  - Weight decreased [Unknown]
  - Treatment failure [Unknown]
  - Dysgeusia [Unknown]
  - Feeling abnormal [Unknown]
  - Nausea [Unknown]
